FAERS Safety Report 20834584 (Version 1)
Quarter: 2022Q2

REPORT INFORMATION
  Report Type: Spontaneous
  Country: JP (occurrence: JP)
  Receive Date: 20220516
  Receipt Date: 20220516
  Transmission Date: 20220721
  Serious: Yes (Other)
  Sender: FDA-Public Use
  Company Number: JP-NOVARTISPH-NVSJ2022JP089846

PATIENT
  Age: 86 Year
  Sex: Male

DRUGS (1)
  1. CYCLOSPORINE [Suspect]
     Active Substance: CYCLOSPORINE
     Indication: Cutaneous symptom
     Dosage: 25 MG, TID
     Route: 048
     Dates: start: 202203

REACTIONS (2)
  - Haemorrhage subcutaneous [Unknown]
  - Skin atrophy [Unknown]
